FAERS Safety Report 8205316-9 (Version None)
Quarter: 2012Q1

REPORT INFORMATION
  Report Type: 
  Country: None (occurrence: None)
  Receive Date: 20120313
  Receipt Date: 20120301
  Transmission Date: 20120608
  Serious: Yes (Other)
  Sender: FDA-Public Use
  Company Number: CA-JNJFOC-20120301388

PATIENT
  Sex: Female
  Weight: 55 kg

DRUGS (3)
  1. REMICADE [Suspect]
     Route: 042
     Dates: start: 20091001
  2. REMICADE [Suspect]
     Route: 042
     Dates: start: 20120301
  3. REMICADE [Suspect]
     Indication: CROHN'S DISEASE
     Route: 042
     Dates: start: 20120116

REACTIONS (2)
  - TINNITUS [None]
  - MIGRAINE [None]
